FAERS Safety Report 6266349-5 (Version None)
Quarter: 2009Q3

REPORT INFORMATION
  Report Type: 
  Country: None (occurrence: None)
  Receive Date: 20090713
  Receipt Date: 20090702
  Transmission Date: 20100115
  Serious: Yes (Hospitalization, Other)
  Sender: FDA-Public Use
  Company Number: IT-ELI_LILLY_AND_COMPANY-IT200907000393

PATIENT
  Sex: Male

DRUGS (7)
  1. HUMALOG [Suspect]
     Indication: TYPE 2 DIABETES MELLITUS
     Dosage: 10 IU, DAILY (1/D)
     Route: 058
     Dates: start: 20090401, end: 20090402
  2. ALFUZOSINE HCL [Concomitant]
     Indication: BENIGN PROSTATIC HYPERPLASIA
     Dosage: 10 MG, UNK
     Route: 048
  3. ESOMEPRAZOLE MAGNESIUM [Concomitant]
     Indication: PROPHYLAXIS AGAINST GASTROINTESTINAL ULCER
     Dosage: 20 MG, UNK
     Route: 048
  4. ASPIRIN [Concomitant]
     Indication: TYPE 2 DIABETES MELLITUS
     Dosage: 100 MG, UNK
     Route: 048
  5. MADOPAR [Concomitant]
     Indication: EXTRAPYRAMIDAL DISORDER
     Dosage: 2 D/F, UNK
     Route: 048
  6. SEROQUEL [Concomitant]
     Indication: VASCULAR ENCEPHALOPATHY
     Dosage: 25 MG, UNK
     Route: 048
  7. COMTAN [Concomitant]
     Indication: DEMENTIA
     Dosage: 200 MG, UNK
     Route: 048

REACTIONS (5)
  - HYPERHIDROSIS [None]
  - HYPOGLYCAEMIA [None]
  - LOSS OF CONSCIOUSNESS [None]
  - TONIC CLONIC MOVEMENTS [None]
  - TRISMUS [None]
